FAERS Safety Report 17678948 (Version 1)
Quarter: 2020Q2

REPORT INFORMATION
  Report Type: Spontaneous
  Country: US (occurrence: US)
  Receive Date: 20200416
  Receipt Date: 20200416
  Transmission Date: 20200714
  Serious: No
  Sender: FDA-Public Use
  Company Number: None

PATIENT
  Sex: Female

DRUGS (2)
  1. MYCOPHENOLIC ACID DR 180MG APOTEX [Suspect]
     Active Substance: MYCOPHENOLIC ACID
     Indication: RENAL TRANSPLANT
     Route: 048
     Dates: start: 20200204
  2. CINACALET HCL 90MG CIPLA USA [Suspect]
     Active Substance: CINACALCET HYDROCHLORIDE
     Indication: RENAL TRANSPLANT
     Route: 048
     Dates: start: 20200204

REACTIONS (3)
  - Dyspnoea [None]
  - Wrong product administered [None]
  - Alopecia [None]
